FAERS Safety Report 5803948-6 (Version None)
Quarter: 2008Q3

REPORT INFORMATION
  Report Type: 
  Country: None (occurrence: None)
  Receive Date: 20080708
  Receipt Date: 20080626
  Transmission Date: 20090109
  Serious: Yes (Other)
  Sender: FDA-Public Use
  Company Number: US-PFIZER INC-2008054449

PATIENT
  Sex: Female
  Weight: 56 kg

DRUGS (9)
  1. LYRICA [Suspect]
     Indication: FIBROMYALGIA
     Route: 048
     Dates: start: 20060101, end: 20080201
  2. CHANTIX [Suspect]
     Indication: EX-TOBACCO USER
     Route: 048
     Dates: start: 20080101, end: 20080301
  3. METHADOSE [Concomitant]
  4. PROVIGIL [Concomitant]
  5. NEXIUM [Concomitant]
  6. TOPAMAX [Concomitant]
  7. LEXAPRO [Concomitant]
  8. ALL OTHER THERAPEUTIC PRODUCTS [Concomitant]
  9. FOSAMAX [Concomitant]

REACTIONS (3)
  - FATIGUE [None]
  - SLEEP APNOEA SYNDROME [None]
  - SOMNOLENCE [None]
